FAERS Safety Report 13796214 (Version 1)
Quarter: 2017Q3

REPORT INFORMATION
  Report Type: Spontaneous
  Country: US (occurrence: US)
  Receive Date: 20170726
  Receipt Date: 20170726
  Transmission Date: 20171127
  Serious: Yes (Other)
  Sender: FDA-Public Use
  Company Number: US-PFIZER INC-2017313990

PATIENT
  Age: 75 Year
  Sex: Male
  Weight: 65.77 kg

DRUGS (3)
  1. ZITHROMAX [Suspect]
     Active Substance: AZITHROMYCIN DIHYDRATE
     Indication: PROPHYLAXIS
     Dosage: 250 MG, 1X/DAY
     Route: 048
     Dates: start: 20170511, end: 20170514
  2. ZITHROMAX [Suspect]
     Active Substance: AZITHROMYCIN DIHYDRATE
     Dosage: UNK, 2X/DAY
  3. ZITHROMAX [Suspect]
     Active Substance: AZITHROMYCIN DIHYDRATE
     Dosage: UNK, 1X/DAY

REACTIONS (7)
  - Paralysis [Recovering/Resolving]
  - Discomfort [Unknown]
  - Arthralgia [Unknown]
  - Fatigue [Recovering/Resolving]
  - Muscle tightness [Unknown]
  - Musculoskeletal stiffness [Unknown]
  - Pain [Unknown]

NARRATIVE: CASE EVENT DATE: 201705
